FAERS Safety Report 5282185-0 (Version None)
Quarter: 2007Q1

REPORT INFORMATION
  Report Type: 
  Country: None (occurrence: None)
  Receive Date: 20070330
  Receipt Date: 20070320
  Transmission Date: 20070707
  Serious: Yes (Other)
  Sender: FDA-Public Use
  Company Number: PT-PFIZER INC-2007015221

PATIENT
  Sex: Female

DRUGS (3)
  1. DALACIN V [Suspect]
     Indication: VAGINITIS BACTERIAL
     Dosage: TEXT:20 MG/G
     Route: 067
     Dates: start: 20070129, end: 20070129
  2. ALPRAZOLAM [Concomitant]
     Indication: ANXIETY
     Route: 048
  3. PERINDOPRIL ERBUMINE [Concomitant]
     Indication: HYPERTENSION
     Route: 048
     Dates: start: 20040101

REACTIONS (5)
  - ABDOMINAL DISTENSION [None]
  - PELVIC PAIN [None]
  - VAGINAL OEDEMA [None]
  - VAGINAL PAIN [None]
  - VULVAL OEDEMA [None]
